FAERS Safety Report 17203313 (Version 1)
Quarter: 2019Q4

REPORT INFORMATION
  Report Type: Spontaneous
  Country: US (occurrence: US)
  Receive Date: 20191226
  Receipt Date: 20191226
  Transmission Date: 20200122
  Serious: No
  Sender: FDA-Public Use
  Company Number: US-UPSHER-SMITH LABORATORIES, LLC-2019USL00797

PATIENT
  Age: 84 Year
  Sex: Male

DRUGS (4)
  1. KLOR-CON M [Suspect]
     Active Substance: POTASSIUM CHLORIDE
     Dosage: 10 MEQ
     Route: 048
  2. KLOR-CON M [Suspect]
     Active Substance: POTASSIUM CHLORIDE
     Indication: ILL-DEFINED DISORDER
     Dosage: 20 MEQ
     Route: 048
  3. KLOR-CON M [Suspect]
     Active Substance: POTASSIUM CHLORIDE
     Dosage: 10 MEQ, 2X/DAY
     Route: 048
  4. UNSPECIFIED WATER PILLS [Concomitant]
     Active Substance: UNSPECIFIED INGREDIENT
     Dosage: UNK

REACTIONS (3)
  - Retching [Not Recovered/Not Resolved]
  - Choking [Not Recovered/Not Resolved]
  - Product use complaint [Not Recovered/Not Resolved]
